FAERS Safety Report 5692708-5 (Version None)
Quarter: 2008Q2

REPORT INFORMATION
  Report Type: 
  Country: None (occurrence: None)
  Receive Date: 20080401
  Receipt Date: 20080307
  Transmission Date: 20081010
  Serious: Yes (Death, Hospitalization)
  Sender: FDA-Public Use
  Company Number: 2008-00268FE

PATIENT
  Age: 68 Year
  Sex: Male

DRUGS (5)
  1. HUMAN GROWTH HORMONE (HUMAN GROWTH HORMONE) (HUMAN GROWTH HORMONE, REC [Suspect]
     Indication: PREMATURE AGEING
     Dosage: 1.2 MG SC
     Route: 058
  2. TESTOSTERONE [Concomitant]
  3. DEHYDROEPIANDROSTERONE [Concomitant]
  4. PREDNISONE [Concomitant]
  5. MESALAMINE [Concomitant]

REACTIONS (1)
  - COLON CANCER METASTATIC [None]
